FAERS Safety Report 8156953 (Version 2)
Quarter: 2013Q2

REPORT INFORMATION
  Report Type: Report from Study
  Country: US (occurrence: US)
  Receive Date: 20110926
  Receipt Date: 20130628
  Transmission Date: 20140414
  Serious: Yes (Hospitalization)
  Sender: FDA-Public Use
  Company Number: PHHO2010US15385

PATIENT
  Age: 66 Year
  Sex: Male

DRUGS (13)
  1. NITROGLYCERIN [Suspect]
  2. LUCENTIS [Suspect]
     Indication: DIABETIC RETINAL OEDEMA
     Dosage: 0.3 MG, UNK
     Dates: start: 20081023, end: 20081023
  3. ASPIRIN [Concomitant]
  4. CARVEDILOL [Concomitant]
  5. ENALAPRIL [Concomitant]
  6. SPIRONOLACTONE [Concomitant]
  7. HYDROCHLOROTHIAZIDE [Concomitant]
  8. LANTUS [Concomitant]
  9. METFORMIN [Concomitant]
  10. TERAZOSIN [Concomitant]
  11. FISH OIL [Concomitant]
  12. CHROMIUM [Concomitant]
  13. COENZYME Q10 [Concomitant]

REACTIONS (8)
  - Myocardial infarction [Recovered/Resolved]
  - Chest pain [Recovered/Resolved]
  - Cardiac enzymes increased [Unknown]
  - Angina pectoris [Unknown]
  - Syncope [Unknown]
  - Loss of consciousness [Unknown]
  - Hyperhidrosis [Unknown]
  - Pallor [Unknown]
